FAERS Safety Report 17598860 (Version 2)
Quarter: 2020Q2

REPORT INFORMATION
  Report Type: Spontaneous
  Country: US (occurrence: US)
  Receive Date: 20200330
  Receipt Date: 20200420
  Transmission Date: 20200713
  Serious: Yes (Other)
  Sender: FDA-Public Use
  Company Number: US-AKORN PHARMACEUTICALS-2020AKN00405

PATIENT
  Sex: Male
  Weight: 111.5 kg

DRUGS (2)
  1. MYORISAN [Suspect]
     Active Substance: ISOTRETINOIN
     Indication: ACNE CYSTIC
     Dosage: UNK
     Dates: start: 20200117, end: 20200211
  2. MYORISAN [Suspect]
     Active Substance: ISOTRETINOIN
     Indication: ACNE CYSTIC
     Dosage: 40 MG, 2X/DAY
     Dates: start: 202002, end: 20200211

REACTIONS (1)
  - Depression [Recovered/Resolved]

NARRATIVE: CASE EVENT DATE: 2020
